FAERS Safety Report 25635756 (Version 1)
Quarter: 2025Q3

REPORT INFORMATION
  Report Type: Spontaneous
  Country: CN (occurrence: CN)
  Receive Date: 20250802
  Receipt Date: 20250802
  Transmission Date: 20251020
  Serious: Yes (Other)
  Sender: NOVARTIS
  Company Number: CN-002147023-NVSC2025CN120227

PATIENT
  Age: 81 Year
  Sex: Female
  Weight: 60.8 kg

DRUGS (6)
  1. SACUBITRIL\VALSARTAN [Suspect]
     Active Substance: SACUBITRIL\VALSARTAN
     Indication: Hypertension
     Dosage: 1.000 DOSAGE FORM, QD (PILL)
     Route: 048
     Dates: start: 20250616, end: 20250719
  2. FLUVASTATIN SODIUM [Concomitant]
     Active Substance: FLUVASTATIN SODIUM
     Indication: Hepatosplenomegaly
     Dosage: 1.000 DOSAGE FORM, QD (PILL)
     Route: 048
     Dates: start: 20230321, end: 20250719
  3. METOPROLOL TARTRATE [Concomitant]
     Active Substance: METOPROLOL TARTRATE
     Indication: Hypertension
     Dosage: 1 DOSAGE FORM, QD (PILL)
     Route: 048
     Dates: start: 20230321, end: 20250719
  4. FEBUXOSTAT [Concomitant]
     Active Substance: FEBUXOSTAT
     Indication: Hyperuricaemia
     Dosage: 1 DOSAGE FORM, QD (PILL)
     Route: 048
     Dates: start: 20240104, end: 20250719
  5. FELODIPINE [Concomitant]
     Active Substance: FELODIPINE
     Indication: Hypertension
     Dosage: 1 DOSAGE FORM, BID (PILL)
     Route: 048
     Dates: start: 20230601, end: 20250719
  6. CALCITRIOL [Concomitant]
     Active Substance: CALCITRIOL
     Indication: Bone demineralisation
     Dosage: 1 DOSAGE FORM, BID (PILL)
     Route: 048
     Dates: start: 20230321, end: 20250719

REACTIONS (4)
  - Hyperkalaemia [Recovering/Resolving]
  - Renal failure [Recovering/Resolving]
  - Abdominal discomfort [Recovering/Resolving]
  - Diarrhoea [Recovering/Resolving]

NARRATIVE: CASE EVENT DATE: 20250720
